FAERS Safety Report 8986641 (Version 1)
Quarter: 2012Q4

REPORT INFORMATION
  Report Type: Spontaneous
  Country: US (occurrence: None)
  Receive Date: 20121217
  Receipt Date: 20121217
  Transmission Date: 20130627
  Serious: Yes (Hospitalization)
  Sender: FDA-Public Use
  Company Number: DKLU1086119

PATIENT
  Age: 3 Year
  Sex: Male
  Weight: 14.24 kg

DRUGS (8)
  1. SABRIL [Suspect]
     Indication: INFANTILE SPASMS
     Route: 048
     Dates: start: 20100201
  2. OXCARBAZEPINE (OXCARBAZEPINE) (60 MG/ML) [Concomitant]
  3. ZONEGRAN (ZONISAMIDE) [Concomitant]
  4. LEVALBUTEROL (LEVOSALBUTAMOL) (0.416 MG/ML, NEBULISER SOLUTION) [Concomitant]
  5. GLYCOPYRROLATE (GLYCOPYRRONIUM) [Concomitant]
  6. BUDESONIDE (BUDESONIDE) (0.125 MG/ML, NEBULISER SOLUTION) [Concomitant]
  7. BACLOFEN (BACLOFEN) [Concomitant]
  8. BENZODIAZEPINES (BENZODIAZEPINE DERIVATIVES) [Concomitant]

REACTIONS (1)
  - Respiratory distress [None]
